FAERS Safety Report 8830099 (Version 1)
Quarter: 2012Q4

REPORT INFORMATION
  Report Type: 
  Country: SE (occurrence: SE)
  Receive Date: 20121008
  Receipt Date: 20121008
  Transmission Date: 20130627
  Serious: Yes (Life-Threatening, Hospitalization)
  Sender: FDA-Public Use
  Company Number: SE-ASTRAZENECA-2012SE61191

PATIENT
  Age: 84 Year
  Sex: Female

DRUGS (5)
  1. SELOKEN ZOC [Suspect]
     Indication: ESSENTIAL HYPERTENSION
     Route: 048
     Dates: end: 20120601
  2. PANODIL [Concomitant]
  3. BEHEPAN [Concomitant]
  4. PANOCOD [Concomitant]
     Dosage: 500mg/30mg
  5. TENORMIN [Concomitant]
     Dosage: 500mg/30mg

REACTIONS (6)
  - Fall [Recovered/Resolved]
  - Humerus fracture [Unknown]
  - Pulse absent [Recovered/Resolved]
  - Syncope [Recovered/Resolved]
  - Bradycardia [Recovered/Resolved]
  - Dizziness [Recovered/Resolved]
